FAERS Safety Report 4368582-6 (Version None)
Quarter: 2004Q2

REPORT INFORMATION
  Report Type: 
  Country: None (occurrence: None)
  Receive Date: 20040528
  Receipt Date: 20040513
  Transmission Date: 20050107
  Serious: Yes (Hospitalization)
  Sender: FDA-Public Use
  Company Number: 2004SE01763

PATIENT
  Age: 64 Year
  Sex: Female
  Weight: 55 kg

DRUGS (4)
  1. ZOMIG [Suspect]
     Indication: MIGRAINE
     Dates: start: 19990101, end: 20040329
  2. ALBYL-E [Concomitant]
  3. ZOCOR [Concomitant]
  4. INDERAL [Concomitant]

REACTIONS (5)
  - ARTHRALGIA [None]
  - CHEST PAIN [None]
  - DRUG ABUSER [None]
  - GLOBAL AMNESIA [None]
  - NECK PAIN [None]
